FAERS Safety Report 9330418 (Version 1)
Quarter: 2013Q2

REPORT INFORMATION
  Report Type: Spontaneous
  Country: US (occurrence: US)
  Receive Date: 20130605
  Receipt Date: 20130605
  Transmission Date: 20140414
  Serious: No
  Sender: FDA-Public Use
  Company Number: US-BIOGENIDEC-2013BI049864

PATIENT
  Sex: Female

DRUGS (1)
  1. AVONEX [Suspect]
     Indication: MULTIPLE SCLEROSIS
     Route: 030
     Dates: end: 20050630

REACTIONS (5)
  - Visual impairment [Unknown]
  - Balance disorder [Unknown]
  - Memory impairment [Unknown]
  - Dysarthria [Unknown]
  - Muscular weakness [Unknown]
